FAERS Safety Report 26071412 (Version 3)
Quarter: 2025Q4

REPORT INFORMATION
  Report Type: Spontaneous
  Country: JP (occurrence: JP)
  Receive Date: 20251120
  Receipt Date: 20251211
  Transmission Date: 20260118
  Serious: Yes (Hospitalization)
  Sender: NOVO NORDISK
  Company Number: JP-NOVOPROD-1564757

PATIENT
  Age: 13 Year
  Sex: Male
  Weight: 54 kg

DRUGS (1)
  1. SOGROYA [Suspect]
     Active Substance: SOMAPACITAN-BECO
     Indication: Growth hormone deficiency
     Dosage: 5 MG, QW
     Route: 058
     Dates: start: 20240520

REACTIONS (1)
  - Epiphysiolysis [Recovering/Resolving]

NARRATIVE: CASE EVENT DATE: 20250701
